FAERS Safety Report 18805230 (Version 1)
Quarter: 2021Q1

REPORT INFORMATION
  Report Type: Spontaneous
  Country: US (occurrence: US)
  Receive Date: 20210129
  Receipt Date: 20210129
  Transmission Date: 20210419
  Serious: No
  Sender: FDA-Public Use
  Company Number: US-BEH-2021127729

PATIENT
  Age: 15 Year
  Sex: Female

DRUGS (1)
  1. HIZENTRA [Suspect]
     Active Substance: HUMAN IMMUNOGLOBULIN G
     Indication: BEHCET^S SYNDROME
     Dosage: 10 GRAM, QOW
     Route: 058
     Dates: start: 201909

REACTIONS (3)
  - Off label use [Unknown]
  - Urinary tract infection [Unknown]
  - No adverse event [Unknown]

NARRATIVE: CASE EVENT DATE: 20210112
